FAERS Safety Report 9557406 (Version 1)
Quarter: 2013Q3

REPORT INFORMATION
  Report Type: Spontaneous
  Country: US (occurrence: None)
  Receive Date: 20130724
  Receipt Date: 20130724
  Transmission Date: 20140515
  Serious: Yes (Other)
  Sender: FDA-Public Use
  Company Number: PHEH2012US011916

PATIENT
  Age: 77 Year
  Sex: Female

DRUGS (6)
  1. RECLAST [Suspect]
     Indication: OSTEOPOROSIS
     Dosage: 5 MG/100 ML, ONCE YEARLY, INTRAVENOUS
     Dates: start: 20111115
  2. ALTACE (RAMIPRIL) [Concomitant]
  3. METOPROLOL (METOPROLOL) [Concomitant]
  4. METFORMIN (METFORMIN) [Concomitant]
  5. DIURETICS (NO INGREDIENTS/SUBSTANCES) [Concomitant]
  6. VITAMIN D (ERGOCALCIFEROL) [Concomitant]

REACTIONS (2)
  - Renal failure acute [None]
  - Blood creatinine increased [None]
